FAERS Safety Report 11928742 (Version 2)
Quarter: 2016Q2

REPORT INFORMATION
  Report Type: Report from Study
  Country: KR (occurrence: KR)
  Receive Date: 20160119
  Receipt Date: 20160406
  Transmission Date: 20160815
  Serious: Yes (Death, Hospitalization, Other)
  Sender: FDA-Public Use
  Company Number: KR-GILEAD-2016-0193392

PATIENT
  Age: 45 Year
  Sex: Male
  Weight: 59 kg

DRUGS (10)
  1. FLUMARIN                           /00780601/ [Concomitant]
     Dosage: UNK
     Dates: start: 20140702
  2. MORPHINE [Concomitant]
     Active Substance: MORPHINE
     Dosage: UNK
     Dates: start: 20140701
  3. HARTMAN                            /02337901/ [Concomitant]
     Dosage: UNK
     Dates: start: 20140702
  4. TRIZELE [Concomitant]
     Active Substance: METRONIDAZOLE
     Dosage: UNK
     Dates: start: 20140627
  5. QUESTRAN [Concomitant]
     Active Substance: CHOLESTYRAMINE
     Dosage: UNK
     Dates: start: 20140627
  6. URSA [Concomitant]
     Dosage: UNK
     Dates: start: 20140627
  7. SMOFLIPID [Concomitant]
     Active Substance: FISH OIL\MEDIUM-CHAIN TRIGLYCERIDES\OLIVE OIL\SOYBEAN OIL
     Dosage: UNK
     Dates: start: 20140701, end: 20140701
  8. PETHIDINE                          /00016302/ [Concomitant]
     Dosage: UNK
     Dates: start: 20140627
  9. TENOFOVIR DISOPROXIL FUMARATE. [Suspect]
     Active Substance: TENOFOVIR DISOPROXIL FUMARATE
     Indication: PRODUCT USED FOR UNKNOWN INDICATION
     Dosage: 300 MG, UNK
     Route: 048
     Dates: start: 20140701
  10. ULTRACET [Concomitant]
     Active Substance: ACETAMINOPHEN\TRAMADOL HYDROCHLORIDE
     Dosage: UNK
     Dates: start: 20140701

REACTIONS (1)
  - Hepatocellular carcinoma [Fatal]

NARRATIVE: CASE EVENT DATE: 20140627
